FAERS Safety Report 4641098-5 (Version None)
Quarter: 2005Q2

REPORT INFORMATION
  Report Type: 
  Country: None (occurrence: None)
  Receive Date: 20050419
  Receipt Date: 20050419
  Transmission Date: 20051028
  Serious: Yes (Hospitalization, Other)
  Sender: FDA-Public Use
  Company Number: None

PATIENT
  Sex: Female

DRUGS (4)
  1. SUN BATH PROTECTIVE TANNING LOTION [Suspect]
     Dosage: TOPICAL
     Route: 061
     Dates: start: 19750101, end: 20030101
  2. SUN BATH PROTECTIVE TANNING CREAM [Suspect]
     Dosage: TOPICAL
     Route: 061
     Dates: start: 19750101, end: 20030101
  3. SUN BATH PROTECTIVE TANNING CREAM [Suspect]
     Dosage: TOPICAL
     Route: 061
  4. COSMETICS (NOS) [Concomitant]

REACTIONS (2)
  - ACUTE MYELOID LEUKAEMIA [None]
  - INTERNAL INJURY [None]
